FAERS Safety Report 8609116-7 (Version None)
Quarter: 2012Q3

REPORT INFORMATION
  Report Type: 
  Country: None (occurrence: None)
  Receive Date: 20120821
  Receipt Date: 20120806
  Transmission Date: 20120928
  Serious: Yes (Other)
  Sender: FDA-Public Use
  Company Number: US-ARROW-2012-14377

PATIENT
  Age: 79 Year
  Sex: Female

DRUGS (9)
  1. DIGOXIN [Suspect]
     Indication: RENAL FAILURE CHRONIC
  2. CLONIDINE [Suspect]
     Indication: ATRIAL FIBRILLATION
  3. DILTIAZEM HYDROCHLORIDE [Suspect]
     Indication: HYPERTENSION
     Dosage: 360 MG, DAILY
     Route: 048
  4. DILTIAZEM HYDROCHLORIDE [Suspect]
     Indication: ATRIAL FIBRILLATION
  5. DILTIAZEM HYDROCHLORIDE [Suspect]
     Indication: RENAL FAILURE CHRONIC
  6. CLONIDINE [Suspect]
     Indication: HYPERTENSION
     Dosage: 0.3 MG, Q8H
     Route: 048
  7. DIGOXIN [Suspect]
     Indication: ATRIAL FIBRILLATION
  8. CLONIDINE [Suspect]
     Indication: RENAL FAILURE CHRONIC
  9. DIGOXIN [Suspect]
     Indication: HYPERTENSION
     Dosage: 0.125 MG, DAILY
     Route: 048

REACTIONS (6)
  - SINUS BRADYCARDIA [None]
  - NODAL RHYTHM [None]
  - ARRHYTHMIA [None]
  - ATRIOVENTRICULAR BLOCK SECOND DEGREE [None]
  - OVERDOSE [None]
  - ATRIAL HYPERTROPHY [None]
